FAERS Safety Report 22522283 (Version 1)
Quarter: 2023Q2

REPORT INFORMATION
  Report Type: Spontaneous
  Country: KR (occurrence: KR)
  Receive Date: 20230605
  Receipt Date: 20230605
  Transmission Date: 20230722
  Serious: Yes (Hospitalization)
  Sender: FDA-Public Use
  Company Number: KR-ORGANON-O2305KOR003251

PATIENT
  Age: 65 Year
  Sex: Male
  Weight: 68.9 kg

DRUGS (9)
  1. COZAAR [Suspect]
     Active Substance: LOSARTAN POTASSIUM
     Dosage: UNK, FILM-COATED TABLETS
     Route: 048
  2. HYDROCHLOROTHIAZIDE [Concomitant]
     Active Substance: HYDROCHLOROTHIAZIDE
     Dosage: 25 MILLIGRAM
     Dates: start: 20170811
  3. FOLIC ACID [Concomitant]
     Active Substance: FOLIC ACID
     Indication: Rheumatoid arthritis
     Dosage: UNK
     Dates: start: 20130927
  4. METHOTREXATE [Concomitant]
     Active Substance: METHOTREXATE
     Indication: Rheumatoid arthritis
     Dosage: 25 MILLIGRAM
     Dates: start: 20130927
  5. METHYLPREDNISOLONE [Concomitant]
     Active Substance: METHYLPREDNISOLONE
     Indication: Rheumatoid arthritis
     Dosage: 4 MILLIGRAM, UNCOATED TABLET
     Route: 048
     Dates: start: 20190711
  6. METFORMIN HYDROCHLORIDE [Concomitant]
     Active Substance: METFORMIN HYDROCHLORIDE
     Indication: Type 2 diabetes mellitus
     Dosage: 250 MILLIGRAM
     Route: 048
     Dates: start: 201910
  7. EPERISONE HYDROCHLORIDE [Concomitant]
     Active Substance: EPERISONE HYDROCHLORIDE
     Indication: Arthralgia
     Dosage: UNK
     Route: 048
     Dates: start: 20190627
  8. RABEPRAZOLE SODIUM [Concomitant]
     Active Substance: RABEPRAZOLE SODIUM
     Dosage: UNK, ENTERIC-COATED FILM-COATED TABLETS
     Route: 048
     Dates: start: 20190627
  9. PREGABALIN [Concomitant]
     Active Substance: PREGABALIN
     Indication: Arthralgia
     Dosage: UNK, HARD CAPUSLES, POWDER
     Route: 048
     Dates: start: 20190711

REACTIONS (1)
  - Cholecystitis [Recovered/Resolved]

NARRATIVE: CASE EVENT DATE: 20191022
